FAERS Safety Report 10267110 (Version 1)
Quarter: 2014Q2

REPORT INFORMATION
  Report Type: Spontaneous
  Country: US (occurrence: US)
  Receive Date: 20140630
  Receipt Date: 20140630
  Transmission Date: 20141212
  Serious: Yes (Other)
  Sender: FDA-Public Use
  Company Number: US-ASTRAZENECA-2014SE45912

PATIENT
  Age: 50 Year
  Sex: Female
  Weight: 109.8 kg

DRUGS (3)
  1. NEXIUM [Suspect]
     Indication: GASTROOESOPHAGEAL REFLUX DISEASE
     Route: 048
     Dates: start: 2009
  2. NEXIUM [Suspect]
     Indication: ABDOMINAL PAIN UPPER
     Route: 048
     Dates: start: 2009
  3. OTHER(S)-UNSPECIFIED [Concomitant]
     Dosage: UNKNOWN UNK

REACTIONS (8)
  - Renal cell carcinoma [Unknown]
  - Convulsion [Unknown]
  - Cerebrovascular accident [Unknown]
  - Metastases to liver [Unknown]
  - Thrombosis [Unknown]
  - Gastric haemorrhage [Unknown]
  - Weight increased [Unknown]
  - Drug dose omission [Unknown]
